FAERS Safety Report 9816211 (Version 1)
Quarter: 2014Q1

REPORT INFORMATION
  Report Type: Spontaneous
  Country: FR (occurrence: FR)
  Receive Date: 20140114
  Receipt Date: 20140114
  Transmission Date: 20141002
  Serious: Yes (Hospitalization)
  Sender: FDA-Public Use
  Company Number: FR-ASTRAZENECA-2014SE02224

PATIENT
  Age: 61 Year
  Sex: Male

DRUGS (12)
  1. CRESTOR [Suspect]
     Route: 048
     Dates: end: 20131120
  2. XYZALL [Suspect]
     Route: 065
     Dates: end: 20131120
  3. LAMOTRIGINE ARROW [Suspect]
     Route: 048
     Dates: start: 201307, end: 20131120
  4. DEXERYL [Suspect]
     Route: 061
     Dates: end: 20131120
  5. MIANSERINE [Suspect]
     Route: 065
     Dates: start: 201307, end: 20131122
  6. SULFARLEM S [Concomitant]
  7. ALPRAZOLAM [Concomitant]
  8. PAROXETINE [Concomitant]
  9. PRAXILENE [Concomitant]
  10. PLAVIX [Concomitant]
  11. NEBIVOLOL [Concomitant]
  12. DUPHALAC [Concomitant]

REACTIONS (1)
  - Eczema [Recovering/Resolving]
